FAERS Safety Report 19770742 (Version 7)
Quarter: 2022Q1

REPORT INFORMATION
  Report Type: Report from Study
  Country: US (occurrence: US)
  Receive Date: 20210831
  Receipt Date: 20220328
  Transmission Date: 20220423
  Serious: Yes (Other)
  Sender: FDA-Public Use
  Company Number: US-APELLIS-00826

PATIENT
  Age: 57 Year
  Sex: Male

DRUGS (9)
  1. EMPAVELI [Suspect]
     Active Substance: PEGCETACOPLAN
     Indication: Paroxysmal nocturnal haemoglobinuria
     Route: 058
     Dates: start: 20210629
  2. EMPAVELI [Suspect]
     Active Substance: PEGCETACOPLAN
     Indication: Paroxysmal nocturnal haemoglobinuria
     Route: 058
     Dates: start: 20210624
  3. EMPAVELI [Suspect]
     Active Substance: PEGCETACOPLAN
     Indication: Paroxysmal nocturnal haemoglobinuria
     Route: 058
     Dates: start: 20210624
  4. 4175930 (GLOBALC3Mar21): Aimovig [Concomitant]
     Indication: Product used for unknown indication
  5. 1262395 (GLOBALC3Mar21): Lisinopril [Concomitant]
     Indication: Product used for unknown indication
  6. 1326887 (GLOBALC3Mar21): Loratadine [Concomitant]
     Indication: Product used for unknown indication
  7. 1268236 (GLOBALC3Mar21): Omeprazole [Concomitant]
     Indication: Product used for unknown indication
  8. 96485 (GLOBALC3Sep21): Albuterol [Concomitant]
     Indication: Product used for unknown indication
  9. 3746154 (GLOBALC3Sep21): cough syrup [Concomitant]
     Indication: Product used for unknown indication

REACTIONS (15)
  - Pneumonia [Recovered/Resolved]
  - Abdominal pain [Recovering/Resolving]
  - Migraine [Not Recovered/Not Resolved]
  - Fatigue [Unknown]
  - Nausea [Not Recovered/Not Resolved]
  - Vomiting [Not Recovered/Not Resolved]
  - Back pain [Unknown]
  - Incorrect dose administered [Unknown]
  - Product leakage [Unknown]
  - Infusion site cyst [Recovered/Resolved]
  - Injection site pain [Recovered/Resolved]
  - Device use error [Recovered/Resolved]
  - Pruritus [Unknown]
  - Bronchitis [Unknown]
  - Product dose omission issue [Recovered/Resolved]

NARRATIVE: CASE EVENT DATE: 20210629
